FAERS Safety Report 12354917 (Version 1)
Quarter: 2016Q2

REPORT INFORMATION
  Report Type: Spontaneous
  Country: CO (occurrence: CO)
  Receive Date: 20160511
  Receipt Date: 20160511
  Transmission Date: 20160815
  Serious: Yes (Death, Other)
  Sender: FDA-Public Use
  Company Number: CO-VIIV HEALTHCARE LIMITED-CO2016GSK064683

PATIENT
  Sex: Male

DRUGS (5)
  1. FUZEON [Concomitant]
     Active Substance: ENFUVIRTIDE
     Indication: HIV TEST POSITIVE
     Route: 042
  2. DARUNAVIR + RITONAVIR [Suspect]
     Active Substance: DARUNAVIR\RITONAVIR
     Indication: HIV TEST POSITIVE
     Dosage: UNK
  3. TIVICAY [Suspect]
     Active Substance: DOLUTEGRAVIR SODIUM
     Indication: HIV TEST POSITIVE
     Dosage: 50 MG, BID
     Route: 048
  4. ETRAVIRINE [Concomitant]
     Active Substance: ETRAVIRINE
     Indication: HIV TEST POSITIVE
     Dosage: UNK
     Route: 048
  5. PIPERACILLIN AND TAZOBACTAM [Concomitant]
     Active Substance: PIPERACILLIN SODIUM\TAZOBACTAM SODIUM
     Indication: ESCHERICHIA BACTERAEMIA
     Dosage: UNK

REACTIONS (5)
  - Pancreatitis [Fatal]
  - Abdominal pain upper [Unknown]
  - Treatment noncompliance [Unknown]
  - Escherichia bacteraemia [Unknown]
  - Vomiting [Unknown]
